FAERS Safety Report 7601781-6 (Version None)
Quarter: 2011Q2

REPORT INFORMATION
  Report Type: 
  Country: None (occurrence: None)
  Receive Date: 20110630
  Receipt Date: 20100503
  Transmission Date: 20111010
  Serious: Yes (Hospitalization)
  Sender: FDA-Public Use
  Company Number: 10-ADE-SU-0016-ACT

PATIENT
  Age: 7 Month
  Sex: Female
  Weight: 10 kg

DRUGS (4)
  1. VIGABATRIN [Concomitant]
  2. H P ACTHAR [Suspect]
     Indication: INFANTILE SPASMS
     Dosage: 30IU IM Q12H
     Dates: start: 20091030, end: 20091218
  3. TOPAMAX [Concomitant]
  4. ZONEGRAN [Concomitant]

REACTIONS (4)
  - CARDIOMYOPATHY [None]
  - PNEUMOCYSTIS JIROVECI PNEUMONIA [None]
  - PNEUMOTHORAX [None]
  - PNEUMONIA STREPTOCOCCAL [None]
